FAERS Safety Report 18783289 (Version 4)
Quarter: 2021Q1

REPORT INFORMATION
  Report Type: Spontaneous
  Country: JP (occurrence: JP)
  Receive Date: 20210125
  Receipt Date: 20210320
  Transmission Date: 20210419
  Serious: Yes (Other)
  Sender: FDA-Public Use
  Company Number: JP-TAKEDA-2021TUS004721

PATIENT
  Age: 15 Year
  Sex: Male

DRUGS (2)
  1. 503 (GUANFACINE HYDROCHLORIDE) [Suspect]
     Active Substance: GUANFACINE HYDROCHLORIDE
     Dosage: UNK UNK, QD
     Route: 048
  2. 503 (GUANFACINE HYDROCHLORIDE) [Suspect]
     Active Substance: GUANFACINE HYDROCHLORIDE
     Indication: ATTENTION DEFICIT HYPERACTIVITY DISORDER
     Dosage: 3 MILLIGRAM, QD
     Route: 048
     Dates: start: 20200517

REACTIONS (4)
  - Weight increased [Recovering/Resolving]
  - Hyperthyroidism [Recovered/Resolved]
  - Hepatic function abnormal [Unknown]
  - Hypertension [Recovered/Resolved]
